FAERS Safety Report 9827779 (Version 1)
Quarter: 2014Q1

REPORT INFORMATION
  Report Type: Report from Study
  Country: US (occurrence: US)
  Receive Date: 20140117
  Receipt Date: 20140117
  Transmission Date: 20141002
  Serious: Yes (Death, Other)
  Sender: FDA-Public Use
  Company Number: US-BRISTOL-MYERS SQUIBB COMPANY-20038576

PATIENT
  Age: 1 Day
  Sex: Female

DRUGS (3)
  1. REYATAZ [Suspect]
     Route: 064
     Dates: start: 20131127
  2. NORVIR [Suspect]
     Route: 064
     Dates: start: 20131127
  3. TRUVADA [Suspect]
     Dosage: 1DF:1 TABS/CAPS
     Route: 064
     Dates: start: 20131127

REACTIONS (2)
  - Death neonatal [Fatal]
  - Umbilical cord prolapse [Unknown]
